FAERS Safety Report 4304309-1 (Version None)
Quarter: 2004Q1

REPORT INFORMATION
  Report Type: 
  Country: None (occurrence: None)
  Receive Date: 20040223
  Receipt Date: 20040218
  Transmission Date: 20041129
  Serious: Yes (Life-Threatening, Hospitalization)
  Sender: FDA-Public Use
  Company Number: DEWYE589518FEB04

PATIENT
  Age: 72 Year
  Sex: Female

DRUGS (4)
  1. TAZOBAC (PIPERACILLIN/TAZOBACTAM, INJECTION) [Suspect]
     Indication: INTESTINAL PERFORATION
     Dosage: 4.5 G 3X PER 1 DAY, INTRAVENOUS
     Route: 042
     Dates: start: 20040205, end: 20040215
  2. TAZOBAC (PIPERACILLIN/TAZOBACTAM, INJECTION) [Suspect]
     Indication: PERITONITIS
     Dosage: 4.5 G 3X PER 1 DAY, INTRAVENOUS
     Route: 042
     Dates: start: 20040205, end: 20040215
  3. CIPROFLOXACIN HCL [Suspect]
     Indication: INTESTINAL PERFORATION
     Dosage: 400 MG 2X PER 1 DAY, INTRAVENOUS
     Route: 042
     Dates: start: 20040205, end: 20040215
  4. CIPROFLOXACIN HCL [Suspect]
     Indication: PERITONITIS
     Dosage: 400 MG 2X PER 1 DAY, INTRAVENOUS
     Route: 042
     Dates: start: 20040205, end: 20040215

REACTIONS (2)
  - KLEBSIELLA INFECTION [None]
  - PNEUMONIA KLEBSIELLA [None]
